FAERS Safety Report 23843660 (Version 5)
Quarter: 2025Q1

REPORT INFORMATION
  Report Type: Spontaneous
  Country: US (occurrence: US)
  Receive Date: 20240510
  Receipt Date: 20250129
  Transmission Date: 20250409
  Serious: No
  Sender: PFIZER
  Company Number: US-PFIZER INC-202400095670

PATIENT
  Age: 70 Year
  Sex: Female

DRUGS (2)
  1. CIBINQO [Suspect]
     Active Substance: ABROCITINIB
     Indication: Dermatitis atopic
     Route: 048
  2. CIBINQO [Suspect]
     Active Substance: ABROCITINIB
     Route: 048

REACTIONS (4)
  - Hypertension [Unknown]
  - Anxiety [Unknown]
  - Pruritus [Recovered/Resolved]
  - Dermatitis atopic [Unknown]
